FAERS Safety Report 19552827 (Version 1)
Quarter: 2021Q3

REPORT INFORMATION
  Report Type: Spontaneous
  Country: US (occurrence: US)
  Receive Date: 20210714
  Receipt Date: 20210714
  Transmission Date: 20211014
  Serious: No
  Sender: FDA-Public Use
  Company Number: US-SA-2021SA227022

PATIENT
  Sex: Female

DRUGS (5)
  1. DUPIXENT [Suspect]
     Active Substance: DUPILUMAB
     Indication: DERMATITIS ATOPIC
     Dosage: 300 MG, QOW
     Route: 058
  2. VYVANSE [Concomitant]
     Active Substance: LISDEXAMFETAMINE DIMESYLATE
     Dosage: 20MG
  3. LEXAPRO [Concomitant]
     Active Substance: ESCITALOPRAM OXALATE
     Dosage: 40MG
  4. PROGESTERONE. [Concomitant]
     Active Substance: PROGESTERONE
     Dosage: 40MG
  5. PROTOPIC [Concomitant]
     Active Substance: TACROLIMUS
     Indication: DERMATITIS ATOPIC

REACTIONS (1)
  - Product dose omission issue [Unknown]
